FAERS Safety Report 6149381-1 (Version None)
Quarter: 2009Q2

REPORT INFORMATION
  Report Type: 
  Country: None (occurrence: None)
  Receive Date: 20090409
  Receipt Date: 20090407
  Transmission Date: 20091009
  Serious: Yes (Life-Threatening, Hospitalization)
  Sender: FDA-Public Use
  Company Number: AU-BIOGENIDEC-2009BI008963

PATIENT
  Age: 62 Year
  Sex: Female

DRUGS (9)
  1. TYSABRI [Suspect]
     Indication: RELAPSING-REMITTING MULTIPLE SCLEROSIS
     Route: 042
     Dates: end: 20090319
  2. TYSABRI [Suspect]
     Route: 042
     Dates: start: 20090324
  3. BACLOFEN [Concomitant]
     Indication: MUSCLE SPASMS
     Route: 048
  4. IRBESARTAN [Concomitant]
     Indication: HYPERTENSION
     Route: 048
  5. DANTROLENE SODIUM [Concomitant]
     Indication: MUSCLE SPASMS
     Route: 048
  6. TEMAZEPAM [Concomitant]
     Indication: SLEEP DISORDER
     Route: 048
     Dates: end: 20090309
  7. TEMAZEPAM [Concomitant]
     Route: 048
     Dates: start: 20090310, end: 20090310
  8. MICROLAT [Concomitant]
     Indication: CONSTIPATION
  9. DENCORUB [Concomitant]
     Indication: PAIN
     Route: 061

REACTIONS (6)
  - ESCHERICHIA URINARY TRACT INFECTION [None]
  - FUNGAL INFECTION [None]
  - LUNG INFECTION PSEUDOMONAL [None]
  - ORAL CANDIDIASIS [None]
  - OVERDOSE [None]
  - PNEUMONIA STAPHYLOCOCCAL [None]
